FAERS Safety Report 6243322-4 (Version None)
Quarter: 2009Q2

REPORT INFORMATION
  Report Type: 
  Country: None (occurrence: None)
  Receive Date: 20090624
  Receipt Date: 20090620
  Transmission Date: 20091009
  Serious: Yes (Death)
  Sender: FDA-Public Use
  Company Number: PHHY2009BR24770

PATIENT
  Sex: Female

DRUGS (2)
  1. FORASEQ [Suspect]
     Dosage: 12/400 UG
  2. MIFLONIDE [Suspect]
     Dosage: 400 UG, UNK

REACTIONS (1)
  - DEATH [None]
